FAERS Safety Report 4423768-7 (Version None)
Quarter: 2004Q3

REPORT INFORMATION
  Report Type: 
  Country: None (occurrence: None)
  Receive Date: 20040806
  Receipt Date: 20040720
  Transmission Date: 20050211
  Serious: Yes (Disabling)
  Sender: FDA-Public Use
  Company Number: GBS040715287

PATIENT
  Age: 32 Year
  Sex: Male

DRUGS (2)
  1. FLUOXETINE [Suspect]
     Indication: DEPRESSION
     Dosage: 1 DSG FORM DAY
     Dates: start: 20030922, end: 20031120
  2. MEBEVERINE HYDROCHLORIDE [Concomitant]

REACTIONS (1)
  - ERECTILE DYSFUNCTION [None]
